FAERS Safety Report 18502096 (Version 1)
Quarter: 2020Q4

REPORT INFORMATION
  Report Type: Spontaneous
  Country: US (occurrence: US)
  Receive Date: 20201113
  Receipt Date: 20201113
  Transmission Date: 20210114
  Serious: No
  Sender: FDA-Public Use
  Company Number: US-009507513-2010USA005895

PATIENT
  Age: 26 Year
  Sex: Female

DRUGS (1)
  1. NEXPLANON [Suspect]
     Active Substance: ETONOGESTREL
     Indication: CONTRACEPTION
     Dosage: 1 DOSAGE FORM
     Route: 059
     Dates: start: 2017, end: 2020

REACTIONS (5)
  - Hypokinesia [Recovered/Resolved]
  - Wrong technique in device usage process [Unknown]
  - Pain in extremity [Recovered/Resolved]
  - Incorrect product administration duration [Unknown]
  - Incision site oedema [Recovered/Resolved]

NARRATIVE: CASE EVENT DATE: 2020
